FAERS Safety Report 20571051 (Version 1)
Quarter: 2022Q1

REPORT INFORMATION
  Report Type: Report from Study
  Country: MX (occurrence: MX)
  Receive Date: 20220309
  Receipt Date: 20220309
  Transmission Date: 20220423
  Serious: Yes (Other)
  Sender: FDA-Public Use
  Company Number: MX-NOVARTISPH-PHHY2017MX119139

PATIENT
  Sex: Female
  Weight: 82 kg

DRUGS (1)
  1. DIOVAN [Suspect]
     Active Substance: VALSARTAN
     Indication: Hypertension
     Dosage: 0.5 DOSAGE FORM, QD (APPROXIMATELY A MONTH AGO)
     Route: 065
     Dates: start: 20170731, end: 20220112

REACTIONS (5)
  - Arrhythmia [Unknown]
  - Product physical issue [Unknown]
  - Peripheral swelling [Unknown]
  - Blood pressure increased [Unknown]
  - Wrong technique in product usage process [Unknown]

NARRATIVE: CASE EVENT DATE: 20170101
